FAERS Safety Report 24354546 (Version 2)
Quarter: 2024Q3

REPORT INFORMATION
  Report Type: Spontaneous
  Country: US (occurrence: US)
  Receive Date: 20240923
  Receipt Date: 20240926
  Transmission Date: 20241017
  Serious: No
  Sender: SANDOZ
  Company Number: US-SANDOZ-SDZ2024US081238

PATIENT
  Sex: Male

DRUGS (2)
  1. RITALIN [Suspect]
     Active Substance: METHYLPHENIDATE HYDROCHLORIDE
     Indication: Product used for unknown indication
     Dosage: 20 MG, TID
     Route: 065
  2. RITALIN [Suspect]
     Active Substance: METHYLPHENIDATE HYDROCHLORIDE
     Dosage: 30 MG, TID
     Route: 065

REACTIONS (5)
  - Condition aggravated [Recovering/Resolving]
  - Aggression [Unknown]
  - Drug ineffective [Unknown]
  - Product availability issue [Unknown]
  - Incorrect dose administered [Unknown]
